FAERS Safety Report 5186503-3 (Version None)
Quarter: 2006Q4

REPORT INFORMATION
  Report Type: 
  Country: None (occurrence: None)
  Receive Date: 20061213
  Receipt Date: 20061204
  Transmission Date: 20070319
  Serious: Yes (Hospitalization)
  Sender: FDA-Public Use
  Company Number: 2006SP004016

PATIENT
  Age: 58 Year
  Sex: Female

DRUGS (1)
  1. PEGETRON [Suspect]
     Indication: HEPATITIS C
     Dosage: SEE IMAGE

REACTIONS (5)
  - CONFUSIONAL STATE [None]
  - HEPATIC FAILURE [None]
  - MENTAL IMPAIRMENT [None]
  - MOBILITY DECREASED [None]
  - PNEUMONIA [None]
